FAERS Safety Report 7539575-2 (Version None)
Quarter: 2011Q2

REPORT INFORMATION
  Report Type: 
  Country: None (occurrence: None)
  Receive Date: 20110609
  Receipt Date: 20110609
  Transmission Date: 20111010
  Serious: Yes (Death)
  Sender: FDA-Public Use
  Company Number: None

PATIENT
  Age: 40 Year
  Sex: Female
  Weight: 87.5442 kg

DRUGS (4)
  1. ALPRAZOLAM [Concomitant]
  2. CHANTIX [Suspect]
     Indication: SMOKING CESSATION THERAPY
     Dates: start: 20110301, end: 20110603
  3. AMITRIPTYLINE HCL [Concomitant]
  4. FEXOFENADINE HCL [Concomitant]

REACTIONS (3)
  - MYOCARDIAL INFARCTION [None]
  - SUDDEN CARDIAC DEATH [None]
  - ANXIETY [None]
